FAERS Safety Report 23961375 (Version 1)
Quarter: 2024Q2

REPORT INFORMATION
  Report Type: Report from Study
  Country: US (occurrence: US)
  Receive Date: 20240611
  Receipt Date: 20240611
  Transmission Date: 20240716
  Serious: Yes (Hospitalization)
  Sender: FDA-Public Use
  Company Number: US-GILEAD-2024-0676173

PATIENT
  Sex: Female

DRUGS (5)
  1. AMBRISENTAN [Suspect]
     Active Substance: AMBRISENTAN
     Indication: Pulmonary arterial hypertension
     Dosage: 10 MG, QD
     Route: 065
     Dates: start: 20110106
  2. AMBRISENTAN [Suspect]
     Active Substance: AMBRISENTAN
     Indication: Pulmonary hypertension
  3. TYVASO DPI [Concomitant]
     Active Substance: TREPROSTINIL
  4. ELIQUIS [Concomitant]
     Active Substance: APIXABAN
  5. REVATIO [Concomitant]
     Active Substance: SILDENAFIL CITRATE

REACTIONS (5)
  - COVID-19 [Unknown]
  - Illness [Unknown]
  - Peripheral swelling [Unknown]
  - Skin odour abnormal [Unknown]
  - Productive cough [Unknown]
